FAERS Safety Report 23333470 (Version 1)
Quarter: 2023Q4

REPORT INFORMATION
  Report Type: Spontaneous
  Country: US (occurrence: US)
  Receive Date: 20231222
  Receipt Date: 20231222
  Transmission Date: 20240110
  Serious: Yes (Other)
  Sender: FDA-Public Use
  Company Number: US-GILEAD-2023-0655691

PATIENT
  Age: 39 Year
  Sex: Female
  Weight: 70.5 kg

DRUGS (1)
  1. YESCARTA [Suspect]
     Active Substance: AXICABTAGENE CILOLEUCEL
     Indication: Diffuse large B-cell lymphoma
     Dosage: UNK
     Route: 042
     Dates: start: 20230329, end: 20230329

REACTIONS (4)
  - Cytokine release syndrome [Unknown]
  - Fatigue [Unknown]
  - Malaise [Unknown]
  - Myalgia [Unknown]

NARRATIVE: CASE EVENT DATE: 20230331
